FAERS Safety Report 17159208 (Version 1)
Quarter: 2019Q4

REPORT INFORMATION
  Report Type: Spontaneous
  Country: US (occurrence: US)
  Receive Date: 20191214
  Receipt Date: 20191214
  Transmission Date: 20200122
  Serious: Yes (Other)
  Sender: FDA-Public Use
  Company Number: None

PATIENT
  Age: 71 Year
  Sex: Female
  Weight: 49.05 kg

DRUGS (16)
  1. TYMLOS [Suspect]
     Active Substance: ABALOPARATIDE
     Indication: PELVIC FRACTURE
     Dosage: ?          QUANTITY:1 INJECTION(S);?
     Route: 058
     Dates: start: 20190930, end: 20191030
  2. DILTIAZEM 240 ER [Concomitant]
  3. AMMONIUM LACTATE CREAM [Concomitant]
     Active Substance: AMMONIUM LACTATE
  4. ECASA 325 MG [Concomitant]
  5. CALCIUM 2000 MG [Concomitant]
  6. BETAMETHASONE DP 0,05% [Concomitant]
  7. LEVETHYROXINE 88 MCG [Concomitant]
  8. GENERIC MUCINEX 600 MG [Concomitant]
  9. CRESTOR [Concomitant]
     Active Substance: ROSUVASTATIN CALCIUM
  10. PANTAZPROLE 40 MG [Concomitant]
  11. DOXEPIN 75 MG [Concomitant]
  12. CLONOPINE 1 MG [Concomitant]
  13. PROAIR HFA [Concomitant]
     Active Substance: ALBUTEROL SULFATE
  14. MULTIVITAMIN [Concomitant]
     Active Substance: VITAMINS
  15. LUETIN 20 MG [Concomitant]
  16. NIACIN ER 1000 MG DAILY [Concomitant]

REACTIONS (4)
  - Drug ineffective [None]
  - Rash [None]
  - Alopecia [None]
  - Rash macular [None]

NARRATIVE: CASE EVENT DATE: 20191030
